FAERS Safety Report 11444488 (Version 2)
Quarter: 2015Q3

REPORT INFORMATION
  Report Type: Report from Study
  Country: FR (occurrence: FR)
  Receive Date: 20150902
  Receipt Date: 20150921
  Transmission Date: 20151125
  Serious: Yes (Hospitalization)
  Sender: FDA-Public Use
  Company Number: FR-ROCHE-1612899

PATIENT
  Age: 66 Year
  Sex: Male
  Weight: 80 kg

DRUGS (4)
  1. COBIMETINIB [Suspect]
     Active Substance: COBIMETINIB
     Route: 048
     Dates: start: 20150804
  2. COBIMETINIB [Suspect]
     Active Substance: COBIMETINIB
     Indication: METASTATIC MALIGNANT MELANOMA
     Dosage: LAST DOSE ADMISNITERED = 3 TABLETS = 60MG
     Route: 048
     Dates: start: 20150701, end: 20150713
  3. VEMURAFENIB [Suspect]
     Active Substance: VEMURAFENIB
     Dosage: HALF DOSE
     Route: 048
     Dates: start: 20150728
  4. VEMURAFENIB [Suspect]
     Active Substance: VEMURAFENIB
     Indication: METASTATIC MALIGNANT MELANOMA
     Dosage: LAST DOSE ADMINISTERED = 8 TABLETS = 1920 MG
     Route: 048
     Dates: start: 20150701, end: 20150715

REACTIONS (4)
  - Cutaneous vasculitis [Not Recovered/Not Resolved]
  - Mouth ulceration [Recovered/Resolved]
  - Rash pustular [Recovered/Resolved]
  - Visual field defect [Recovered/Resolved]

NARRATIVE: CASE EVENT DATE: 20150711
